FAERS Safety Report 23057706 (Version 2)
Quarter: 2023Q4

REPORT INFORMATION
  Report Type: Spontaneous
  Country: US (occurrence: US)
  Receive Date: 20231012
  Receipt Date: 20231016
  Transmission Date: 20240109
  Serious: No
  Sender: FDA-Public Use
  Company Number: US-BIOGEN-2023BI01230211

PATIENT
  Sex: Female

DRUGS (1)
  1. TYSABRI [Suspect]
     Active Substance: NATALIZUMAB
     Indication: Multiple sclerosis
     Route: 050
     Dates: start: 20230627

REACTIONS (5)
  - Multiple sclerosis relapse [Unknown]
  - Paranasal sinus hypersecretion [Unknown]
  - Gastrointestinal disorder [Unknown]
  - Otorrhoea [Unknown]
  - Illness [Unknown]

NARRATIVE: CASE EVENT DATE: 20230101
